FAERS Safety Report 21950991 (Version 4)
Quarter: 2023Q1

REPORT INFORMATION
  Report Type: Report from Study
  Country: US (occurrence: US)
  Receive Date: 20230203
  Receipt Date: 20230309
  Transmission Date: 20230417
  Serious: Yes (Hospitalization, Other)
  Sender: FDA-Public Use
  Company Number: US-ABBVIE-4286153

PATIENT
  Age: 67 Year
  Sex: Male

DRUGS (2)
  1. IMBRUVICA [Suspect]
     Active Substance: IBRUTINIB
     Indication: Waldenstrom^s macroglobulinaemia
     Route: 048
     Dates: start: 20230128
  2. IMBRUVICA [Suspect]
     Active Substance: IBRUTINIB
     Indication: Waldenstrom^s macroglobulinaemia
     Route: 048
     Dates: start: 20181120, end: 202301

REACTIONS (5)
  - Cholecystectomy [Recovering/Resolving]
  - Abdominal pain [Unknown]
  - Varicella [Recovering/Resolving]
  - COVID-19 [Recovering/Resolving]
  - Aortic valve replacement [Unknown]

NARRATIVE: CASE EVENT DATE: 20230128
